FAERS Safety Report 12638768 (Version 1)
Quarter: 2016Q3

REPORT INFORMATION
  Report Type: Report from Study
  Country: US (occurrence: US)
  Receive Date: 20160809
  Receipt Date: 20160809
  Transmission Date: 20161109
  Serious: No
  Sender: FDA-Public Use
  Company Number: GXBR2016US002435

PATIENT
  Age: 4 Year
  Sex: Male

DRUGS (2)
  1. OMNITROPE [Suspect]
     Active Substance: SOMATROPIN
     Indication: FOETAL GROWTH RESTRICTION
     Dosage: 1 MG, QD
     Route: 058
     Dates: start: 201405
  2. IRON SUPPLEMENTS [Concomitant]
     Active Substance: IRON
     Indication: RESTLESS LEGS SYNDROME
     Dosage: 3/4 TSP, QD
     Route: 048

REACTIONS (1)
  - Constipation [Not Recovered/Not Resolved]

NARRATIVE: CASE EVENT DATE: 20160527
